FAERS Safety Report 6830905-3 (Version None)
Quarter: 2010Q3

REPORT INFORMATION
  Report Type: 
  Country: None (occurrence: None)
  Receive Date: 20100712
  Receipt Date: 20100708
  Transmission Date: 20110219
  Serious: Yes (Hospitalization)
  Sender: FDA-Public Use
  Company Number: IT-SANOFI-AVENTIS-2010SA039463

PATIENT
  Sex: Male

DRUGS (2)
  1. LEFLUNOMIDE [Suspect]
     Route: 065
     Dates: start: 20090601, end: 20090701
  2. METHOTREXATE [Concomitant]
     Indication: RHEUMATOID ARTHRITIS
     Route: 065

REACTIONS (3)
  - FATIGUE [None]
  - HISTIOCYTOSIS HAEMATOPHAGIC [None]
  - PYREXIA [None]
